FAERS Safety Report 18021037 (Version 2)
Quarter: 2020Q3

REPORT INFORMATION
  Report Type: Spontaneous
  Country: US (occurrence: US)
  Receive Date: 20200714
  Receipt Date: 20200720
  Transmission Date: 20201103
  Serious: Yes (Hospitalization, Other)
  Sender: FDA-Public Use
  Company Number: US-MACLEODS PHARMACEUTICALS US LTD-MAC2020027268

PATIENT

DRUGS (5)
  1. FLUTICASONE PROPIONATE. [Interacting]
     Active Substance: FLUTICASONE PROPIONATE
     Indication: NASAL CONGESTION
     Dosage: UNK, NASAL SPRAY, BETWEEN THE KNEE INJECTIONS
     Route: 045
  2. TRIAMCINOLONE ACETONIDE. [Suspect]
     Active Substance: TRIAMCINOLONE ACETONIDE
     Indication: SYNOVIAL CYST
     Dosage: 2 DOSAGE FORM, SINGLE, TWO INJECTIONS, ONE MONTH APART
     Route: 014
  3. STRIBILD [Interacting]
     Active Substance: COBICISTAT\ELVITEGRAVIR\EMTRICITABINE\TENOFOVIR DISOPROXIL FUMARATE
     Indication: HIV INFECTION
     Dosage: UNK
     Route: 065
  4. GENVOYA [Interacting]
     Active Substance: COBICISTAT\ELVITEGRAVIR\EMTRICITABINE\TENOFOVIR ALAFENAMIDE FUMARATE
     Indication: HIV INFECTION
     Dosage: UNK
     Route: 065
  5. FLUTICASONE PROPIONATE. [Interacting]
     Active Substance: FLUTICASONE PROPIONATE
     Dosage: UNK, NASAL SPRAY, INTERMITTENTLY, AFTER DISCHARGED HOME
     Route: 045

REACTIONS (8)
  - Hypothalamic pituitary adrenal axis suppression [Recovered/Resolved]
  - Deep vein thrombosis [Recovered/Resolved]
  - Drug interaction [Recovering/Resolving]
  - Pulmonary embolism [Recovered/Resolved]
  - Cushing^s syndrome [Recovered/Resolved]
  - Drug level increased [Unknown]
  - Localised infection [Recovering/Resolving]
  - Ulcer [Recovering/Resolving]
